FAERS Safety Report 7013743-0 (Version None)
Quarter: 2010Q3

REPORT INFORMATION
  Report Type: 
  Country: None (occurrence: None)
  Receive Date: 20100924
  Receipt Date: 20100916
  Transmission Date: 20110219
  Serious: Yes (Hospitalization)
  Sender: FDA-Public Use
  Company Number: FR-PFIZER INC-2010114483

PATIENT
  Age: 91 Year
  Sex: Female

DRUGS (5)
  1. AMLODIPINE [Suspect]
     Indication: HYPERTENSION
     Dosage: 5 MG, DAILY
     Route: 048
  2. ALISKIREN ^RASILEZ^ [Interacting]
     Indication: HYPERTENSION
     Dosage: 300 MG, DAILY
     Route: 048
     Dates: start: 20100401, end: 20100610
  3. TAREG [Interacting]
     Indication: HYPERTENSION
     Dosage: 80 MG, DAILY
     Route: 048
     Dates: end: 20100613
  4. PLAVIX [Concomitant]
     Dosage: 75 MG, DAILY
     Route: 048
  5. AMITRIPTYLINE HCL [Concomitant]
     Dosage: 1 DF, DAILY
     Route: 048

REACTIONS (4)
  - ABNORMAL BEHAVIOUR [None]
  - DRUG INTERACTION [None]
  - FATIGUE [None]
  - HYPONATRAEMIA [None]
